FAERS Safety Report 16445522 (Version 1)
Quarter: 2019Q2

REPORT INFORMATION
  Report Type: Spontaneous
  Country: US (occurrence: US)
  Receive Date: 20190618
  Receipt Date: 20190618
  Transmission Date: 20190711
  Serious: No
  Sender: FDA-Public Use
  Company Number: US-PFIZER INC-2019254713

PATIENT
  Age: 65 Year
  Sex: Male
  Weight: 102 kg

DRUGS (3)
  1. AMITRIPTYLINE [Suspect]
     Active Substance: AMITRIPTYLINE
     Dosage: 5 MG, UNK ( AMITRIPTYLINE IN THE EVENING, 5MG, AND HE TAKES FIVE)
  2. GABAPENTIN. [Suspect]
     Active Substance: GABAPENTIN
     Indication: NEUROPATHY PERIPHERAL
     Dosage: 800 MG, 3X/DAY
     Route: 048
  3. AMITRIPTYLINE [Suspect]
     Active Substance: AMITRIPTYLINE
     Dosage: 10 MG, 1X/DAY [HE TAKES FIVE]

REACTIONS (5)
  - Insomnia [Unknown]
  - Drug ineffective for unapproved indication [Unknown]
  - Nightmare [Unknown]
  - Intentional product misuse [Unknown]
  - Off label use [Unknown]
